FAERS Safety Report 7007010-9 (Version None)
Quarter: 2010Q3

REPORT INFORMATION
  Report Type: 
  Country: None (occurrence: None)
  Receive Date: 20100922
  Receipt Date: 20100907
  Transmission Date: 20110219
  Serious: Yes (Hospitalization)
  Sender: FDA-Public Use
  Company Number: US-CELGENEUS-163-21880-10090518

PATIENT
  Sex: Female

DRUGS (21)
  1. REVLIMID [Suspect]
     Indication: ACUTE MYELOID LEUKAEMIA
     Route: 048
     Dates: start: 20100709, end: 20100729
  2. REVLIMID [Suspect]
     Route: 048
     Dates: start: 20100806, end: 20100826
  3. BENADRYL [Concomitant]
     Indication: PRODUCT USED FOR UNKNOWN INDICATION
     Route: 048
  4. DOCUSATE SODIUM [Concomitant]
     Indication: CONSTIPATION
     Route: 048
  5. HEPARIN LOCK-FLUSH [Concomitant]
     Dosage: 100 UNITS/ML
     Route: 051
  6. LEVAQUIN [Concomitant]
     Indication: PRODUCT USED FOR UNKNOWN INDICATION
     Route: 048
  7. LISINOPRIL [Concomitant]
     Indication: BLOOD PRESSURE
     Route: 048
  8. LOPID [Concomitant]
     Route: 048
  9. MAGNESIUM OXIDE [Concomitant]
     Indication: VITAMIN SUPPLEMENTATION
     Route: 048
  10. NEURONTIN [Concomitant]
     Indication: NEURALGIA
     Route: 048
  11. NORVASC [Concomitant]
     Indication: BLOOD PRESSURE
     Route: 048
  12. OXYBUTYNIN [Concomitant]
     Indication: BLADDER DISORDER
     Route: 048
  13. PEPCID [Concomitant]
     Indication: GASTRIC DISORDER
     Route: 048
  14. SENSIPAR [Concomitant]
     Route: 048
  15. SPIRIVA [Concomitant]
     Route: 055
  16. TEMAZEPAM [Concomitant]
     Indication: INSOMNIA
     Route: 048
  17. VALIUM [Concomitant]
     Indication: ANXIETY
     Route: 048
  18. VALTREX [Concomitant]
     Indication: ANTIVIRAL PROPHYLAXIS
     Route: 048
  19. VANTIN [Concomitant]
     Indication: PRODUCT USED FOR UNKNOWN INDICATION
     Route: 048
  20. VFEND [Concomitant]
     Indication: ANTIFUNGAL PROPHYLAXIS
     Route: 048
  21. ZOFRAN [Concomitant]
     Indication: PRODUCT USED FOR UNKNOWN INDICATION
     Route: 048

REACTIONS (3)
  - ASTHENIA [None]
  - FAILURE TO THRIVE [None]
  - FATIGUE [None]
